FAERS Safety Report 10240818 (Version 1)
Quarter: 2014Q2

REPORT INFORMATION
  Report Type: Spontaneous
  Country: SE (occurrence: SE)
  Receive Date: 20140617
  Receipt Date: 20140617
  Transmission Date: 20141212
  Serious: Yes (Hospitalization, Other)
  Sender: FDA-Public Use
  Company Number: SE-ROCHE-1414119

PATIENT
  Age: 30 Year
  Sex: Female

DRUGS (3)
  1. PEGASYS [Suspect]
     Indication: HEPATITIS C
     Route: 065
  2. COPEGUS [Suspect]
     Indication: HEPATITIS C
     Route: 065
  3. LEVAXIN [Concomitant]
     Route: 065

REACTIONS (6)
  - Retinopathy [Unknown]
  - Intracranial pressure increased [Unknown]
  - Visual acuity reduced [Recovered/Resolved]
  - Papilloedema [Unknown]
  - Retinal haemorrhage [Unknown]
  - Headache [Not Recovered/Not Resolved]
